FAERS Safety Report 11437612 (Version 1)
Quarter: 2015Q3

REPORT INFORMATION
  Report Type: Spontaneous
  Country: US (occurrence: US)
  Receive Date: 20150821
  Receipt Date: 20150821
  Transmission Date: 20151125
  Serious: No
  Sender: FDA-Public Use
  Company Number: US-ELI_LILLY_AND_COMPANY-US200705003934

PATIENT
  Sex: Male
  Weight: 70.75 kg

DRUGS (1)
  1. CYMBALTA [Suspect]
     Active Substance: DULOXETINE HYDROCHLORIDE
     Indication: DEPRESSION
     Dosage: 30 MG, EACH MORNING
     Dates: start: 20070420, end: 20070514

REACTIONS (5)
  - Incoherent [Recovered/Resolved]
  - Vision blurred [Recovered/Resolved]
  - Aura [Recovered/Resolved]
  - Road traffic accident [Recovered/Resolved]
  - Amnesia [Recovered/Resolved]

NARRATIVE: CASE EVENT DATE: 2007
